FAERS Safety Report 7353970-6 (Version None)
Quarter: 2011Q1

REPORT INFORMATION
  Report Type: 
  Country: None (occurrence: None)
  Receive Date: 20110315
  Receipt Date: 20110302
  Transmission Date: 20110831
  Serious: Yes (Hospitalization)
  Sender: FDA-Public Use
  Company Number: PHBS2000GR04027

PATIENT
  Age: 18 Year
  Sex: Female

DRUGS (4)
  1. NEORAL [Suspect]
     Route: 048
  2. NEORAL [Suspect]
     Dosage: 1 MEQ/KG, EVERY WEEK
  3. CLOBETASOL PROPIONATE [Concomitant]
  4. NEORAL [Suspect]
     Indication: PSORIASIS
     Dosage: 4 MG/KG, UNK
     Route: 048

REACTIONS (8)
  - MUSCULAR WEAKNESS [None]
  - MYALGIA [None]
  - PUSTULAR PSORIASIS [None]
  - MALAISE [None]
  - DRUG WITHDRAWAL SYNDROME [None]
  - RED BLOOD CELL SEDIMENTATION RATE INCREASED [None]
  - PYREXIA [None]
  - DERMATITIS EXFOLIATIVE [None]
